FAERS Safety Report 24687235 (Version 1)
Quarter: 2024Q4

REPORT INFORMATION
  Report Type: Spontaneous
  Country: GB (occurrence: GB)
  Receive Date: 20241202
  Receipt Date: 20241202
  Transmission Date: 20250115
  Serious: Yes (Life-Threatening, Other)
  Sender: ELI LILLY AND COMPANY
  Company Number: None

PATIENT
  Age: 62 Year
  Sex: Male
  Weight: 108 kg

DRUGS (1)
  1. MOUNJARO [Suspect]
     Active Substance: TIRZEPATIDE
     Indication: Product used for unknown indication
     Dosage: UNK UNK, UNKNOWN
     Route: 065
     Dates: end: 20241125

REACTIONS (6)
  - Abdominal discomfort [Recovering/Resolving]
  - Gastrointestinal stoma output increased [Unknown]
  - Fluid intake reduced [Unknown]
  - Bowel movement irregularity [Unknown]
  - Acute kidney injury [Unknown]
  - Dehydration [Unknown]

NARRATIVE: CASE EVENT DATE: 20241125
